FAERS Safety Report 19204218 (Version 2)
Quarter: 2021Q2

REPORT INFORMATION
  Report Type: Report from Study
  Country: CA (occurrence: CA)
  Receive Date: 20210503
  Receipt Date: 20210505
  Transmission Date: 20210717
  Serious: Yes (Other)
  Sender: FDA-Public Use
  Company Number: CA-TAIHO ONCOLOGY  INC-EU-2021-01305

PATIENT
  Age: 93 Year
  Sex: Female
  Weight: 51.4 kg

DRUGS (1)
  1. LONSURF [Suspect]
     Active Substance: TIPIRACIL HYDROCHLORIDE\TRIFLURIDINE
     Indication: COLORECTAL CANCER METASTATIC
     Dosage: CYCLE 1, DOSE AND FREQUENCY UNKNOWN
     Route: 048
     Dates: start: 20210420, end: 202104

REACTIONS (3)
  - Pain [Unknown]
  - Haematochezia [Unknown]
  - Diarrhoea [Unknown]
